FAERS Safety Report 11225746 (Version 9)
Quarter: 2020Q4

REPORT INFORMATION
  Report Type: Spontaneous
  Country: FR (occurrence: FR)
  Receive Date: 20150629
  Receipt Date: 20201021
  Transmission Date: 20210113
  Serious: Yes (Congenital Anomaly, Other)
  Sender: FDA-Public Use
  Company Number: FR-MERCK-1506FRA011547

PATIENT
  Sex: Male
  Weight: 2.44 kg

DRUGS (4)
  1. ISENTRESS [Suspect]
     Active Substance: RALTEGRAVIR POTASSIUM
     Dosage: UNK
     Route: 064
  2. PREZISTA [Suspect]
     Active Substance: DARUNAVIR ETHANOLATE
     Dosage: UNK
     Route: 064
  3. TRANDATE [Suspect]
     Active Substance: LABETALOL HYDROCHLORIDE
     Dosage: UNK
     Route: 064
  4. NORVIR [Suspect]
     Active Substance: RITONAVIR
     Dosage: UNK
     Route: 064

REACTIONS (14)
  - Congenital hydrocephalus [Unknown]
  - Cerebral ventricle dilatation [Unknown]
  - Rib synostosis [Unknown]
  - Tracheo-oesophageal fistula [Unknown]
  - Anotia [Unknown]
  - Vascular malformation [Unknown]
  - Aqueductal stenosis [Unknown]
  - Multiple congenital abnormalities [Not Recovered/Not Resolved]
  - Hemivertebra [Unknown]
  - Spine malformation [Unknown]
  - Premature baby [Unknown]
  - Foetal exposure during pregnancy [Recovered/Resolved]
  - Oesophageal atresia [Unknown]
  - Low birth weight baby [Unknown]

NARRATIVE: CASE EVENT DATE: 201501
